FAERS Safety Report 11786715 (Version 1)
Quarter: 2015Q4

REPORT INFORMATION
  Report Type: Spontaneous
  Country: US (occurrence: US)
  Receive Date: 20151130
  Receipt Date: 20151130
  Transmission Date: 20160305
  Serious: No
  Sender: FDA-Public Use
  Company Number: US-B.I. PHARMACEUTICALS,INC./RIDGEFIELD-2015-BI-64592BP

PATIENT
  Age: 80 Year
  Sex: Female
  Weight: 98 kg

DRUGS (1)
  1. PRADAXA [Suspect]
     Active Substance: DABIGATRAN ETEXILATE MESYLATE
     Indication: CARDIAC PACEMAKER INSERTION
     Dosage: 300 MG
     Route: 055
     Dates: start: 201502

REACTIONS (6)
  - Oral mucosal blistering [Recovered/Resolved]
  - Off label use [Unknown]
  - Scar [Recovered/Resolved]
  - Burn oral cavity [Recovered/Resolved]
  - Oral pain [Recovered/Resolved]
  - Nasopharyngitis [Not Recovered/Not Resolved]

NARRATIVE: CASE EVENT DATE: 201502
